FAERS Safety Report 21904129 (Version 1)
Quarter: 2023Q1

REPORT INFORMATION
  Report Type: Spontaneous
  Country: US (occurrence: None)
  Receive Date: 20230123
  Receipt Date: 20230123
  Transmission Date: 20230417
  Serious: Yes (Other)
  Sender: FDA-Public Use
  Company Number: None

PATIENT
  Age: 70 Year
  Sex: Male

DRUGS (6)
  1. REPATHA [Suspect]
     Active Substance: EVOLOCUMAB
     Indication: Hypercholesterolaemia
     Dosage: 140MG Q 2 WEEKS SUBCUTANEOUS
     Route: 058
     Dates: start: 20221122, end: 20230123
  2. ALLOPURINOL [Concomitant]
     Active Substance: ALLOPURINOL
  3. BYSTOLIC [Concomitant]
     Active Substance: NEBIVOLOL HYDROCHLORIDE
  4. POTASSIUM CITRATE [Concomitant]
     Active Substance: POTASSIUM CITRATE
  5. RAMIPRIL [Concomitant]
     Active Substance: RAMIPRIL
  6. PANTOPRAZOLE [Concomitant]
     Active Substance: PANTOPRAZOLE

REACTIONS (4)
  - Angioedema [None]
  - Dyspnoea [None]
  - Pain [None]
  - Chest discomfort [None]

NARRATIVE: CASE EVENT DATE: 20230123
